FAERS Safety Report 5820345-8 (Version None)
Quarter: 2008Q3

REPORT INFORMATION
  Report Type: 
  Country: None (occurrence: None)
  Receive Date: 20080724
  Receipt Date: 20070706
  Transmission Date: 20090109
  Serious: No
  Sender: FDA-Public Use
  Company Number: A0655264A

PATIENT
  Sex: Female
  Weight: 93.2 kg

DRUGS (9)
  1. AVANDIA [Suspect]
     Route: 048
     Dates: start: 19941130, end: 20070625
  2. PAXIL [Concomitant]
  3. DIOVAN [Concomitant]
  4. INSULIN [Concomitant]
  5. VALTREX [Concomitant]
  6. NAPROXEN SODIUM [Concomitant]
  7. CRESTOR [Concomitant]
  8. PEPCID [Concomitant]
  9. UNKNOWN MEDICATION [Concomitant]

REACTIONS (6)
  - ABDOMINAL DISTENSION [None]
  - FLUID RETENTION [None]
  - HEADACHE [None]
  - OEDEMA PERIPHERAL [None]
  - PHARMACEUTICAL PRODUCT COMPLAINT [None]
  - WEIGHT INCREASED [None]
